FAERS Safety Report 12731215 (Version 1)
Quarter: 2016Q3

REPORT INFORMATION
  Report Type: Report from Study
  Country: US (occurrence: US)
  Receive Date: 20160912
  Receipt Date: 20160912
  Transmission Date: 20161109
  Serious: No
  Sender: FDA-Public Use
  Company Number: US-AMGEN-USASL2016114990

PATIENT
  Sex: Female

DRUGS (2)
  1. ENBREL [Suspect]
     Active Substance: ETANERCEPT
     Indication: PRODUCT USED FOR UNKNOWN INDICATION
     Dosage: UNK
     Route: 065
     Dates: start: 2016, end: 2016
  2. ENBREL [Suspect]
     Active Substance: ETANERCEPT
     Dosage: UNK
     Route: 065
     Dates: start: 2016

REACTIONS (8)
  - Back pain [Unknown]
  - Anxiety [Unknown]
  - Nausea [Unknown]
  - Joint swelling [Unknown]
  - Dyspnoea [Unknown]
  - Chest pain [Unknown]
  - Intentional product misuse [Unknown]
  - Throat tightness [Unknown]

NARRATIVE: CASE EVENT DATE: 2016
